FAERS Safety Report 12620349 (Version 2)
Quarter: 2016Q4

REPORT INFORMATION
  Report Type: Spontaneous
  Country: IT (occurrence: IT)
  Receive Date: 20160803
  Receipt Date: 20161012
  Transmission Date: 20170207
  Serious: Yes (Other)
  Sender: FDA-Public Use
  Company Number: IT-UCBSA-2016028367

PATIENT
  Age: 38 Year
  Sex: Female

DRUGS (4)
  1. LEVETIRACETAM. [Suspect]
     Active Substance: LEVETIRACETAM
     Indication: LENNOX-GASTAUT SYNDROME
     Dosage: DAILY DOSE OF 1000 MG
     Route: 048
     Dates: start: 20160520, end: 20160520
  2. VIMPAT [Concomitant]
     Active Substance: LACOSAMIDE
     Indication: PRODUCT USED FOR UNKNOWN INDICATION
     Dosage: 200 MG FILM-COATED TABLETS AT A DOSE OF 400 MG ORAL FOR 2 YEARS
     Route: 048
  3. LEVETIRACETAM. [Suspect]
     Active Substance: LEVETIRACETAM
     Indication: OFF LABEL USE
  4. DINTOINA [Concomitant]
     Active Substance: PHENYTOIN SODIUM
     Indication: LENNOX-GASTAUT SYNDROME
     Dosage: 100 MG COATED TABLETS AT A DOSE OF 200 MG ORAL FOR 2 YEARS
     Route: 048

REACTIONS (2)
  - Seizure [Recovered/Resolved]
  - Off label use [Unknown]

NARRATIVE: CASE EVENT DATE: 20160520
